FAERS Safety Report 12475267 (Version 2)
Quarter: 2016Q4

REPORT INFORMATION
  Report Type: Spontaneous
  Country: US (occurrence: US)
  Receive Date: 20160617
  Receipt Date: 20161028
  Transmission Date: 20170207
  Serious: No
  Sender: FDA-Public Use
  Company Number: US-GLAXOSMITHKLINE-US2016044754

PATIENT
  Age: 57 Year
  Sex: Female

DRUGS (1)
  1. BECONASE AQ [Suspect]
     Active Substance: BECLOMETHASONE DIPROPIONATE MONOHYDRATE
     Indication: MULTIPLE ALLERGIES
     Dosage: 2 DF, QD
     Route: 045
     Dates: start: 20160330

REACTIONS (5)
  - Rhinorrhoea [Recovering/Resolving]
  - Wheezing [Recovering/Resolving]
  - Product odour abnormal [Recovering/Resolving]
  - Headache [Recovering/Resolving]
  - Sneezing [Unknown]

NARRATIVE: CASE EVENT DATE: 20160330
